FAERS Safety Report 15905379 (Version 2)
Quarter: 2019Q1

REPORT INFORMATION
  Report Type: Not Available
  Country: US (occurrence: US)
  Receive Date: 20190204
  Receipt Date: 20190222
  Transmission Date: 20190417
  Serious: No
  Sender: FDA-Public Use
  Company Number: US-NEUROCRINE BIOSCIENCES INC.-2019NBI00275

PATIENT
  Sex: Male

DRUGS (6)
  1. INGREZZA [Suspect]
     Active Substance: VALBENAZINE
     Indication: TARDIVE DYSKINESIA
     Route: 048
     Dates: start: 20181031
  2. INGREZZA [Suspect]
     Active Substance: VALBENAZINE
     Route: 048
  3. COGNITIN [Concomitant]
     Indication: TREMOR
     Dates: start: 20190114, end: 2019
  4. COGNITIN [Concomitant]
     Indication: EXTRAPYRAMIDAL DISORDER
  5. CELEXA [Concomitant]
     Active Substance: CITALOPRAM HYDROBROMIDE
     Route: 048
     Dates: start: 2017
  6. ZYPREXA [Concomitant]
     Active Substance: OLANZAPINE
     Indication: BIPOLAR DISORDER
     Route: 048
     Dates: start: 2017

REACTIONS (2)
  - Sluggishness [Unknown]
  - Fatigue [Unknown]
